FAERS Safety Report 10627069 (Version 2)
Quarter: 2015Q1

REPORT INFORMATION
  Report Type: Spontaneous
  Country: US (occurrence: US)
  Receive Date: 20141204
  Receipt Date: 20150107
  Transmission Date: 20150720
  Serious: No
  Sender: FDA-Public Use
  Company Number: US-LUNDBECK-DKLU1105943

PATIENT
  Sex: Male
  Weight: 80 kg

DRUGS (8)
  1. AZILECT [Concomitant]
     Active Substance: RASAGILINE MESYLATE
     Indication: PRODUCT USED FOR UNKNOWN INDICATION
  2. VITAMIN D3 [Concomitant]
     Active Substance: CHOLECALCIFEROL
     Indication: PRODUCT USED FOR UNKNOWN INDICATION
  3. NORTHERA [Suspect]
     Active Substance: DROXIDOPA
     Indication: ORTHOSTATIC HYPOTENSION
     Route: 048
     Dates: start: 201410, end: 20141107
  4. PROBIOTIC [Concomitant]
     Active Substance: PROBIOTICS NOS
     Indication: PRODUCT USED FOR UNKNOWN INDICATION
  5. ICAPS [Concomitant]
     Active Substance: MINERALS\VITAMINS
     Indication: PRODUCT USED FOR UNKNOWN INDICATION
  6. CARBIDOPA/LEVODOPA [Concomitant]
     Active Substance: CARBIDOPA\LEVODOPA
     Indication: PRODUCT USED FOR UNKNOWN INDICATION
     Dosage: 25/100
  7. RIVASTIGMINE [Concomitant]
     Active Substance: RIVASTIGMINE
     Indication: PRODUCT USED FOR UNKNOWN INDICATION
  8. EXELON [Concomitant]
     Active Substance: RIVASTIGMINE TARTRATE
     Indication: PRODUCT USED FOR UNKNOWN INDICATION
     Route: 062

REACTIONS (2)
  - Blood pressure fluctuation [Not Recovered/Not Resolved]
  - Drug ineffective [Unknown]
